APPROVED DRUG PRODUCT: ALPRAZOLAM
Active Ingredient: ALPRAZOLAM
Strength: 2MG
Dosage Form/Route: TABLET;ORAL
Application: A074174 | Product #004 | TE Code: AB
Applicant: NOVITIUM PHARMA LLC
Approved: Oct 19, 1993 | RLD: No | RS: No | Type: RX